FAERS Safety Report 20109045 (Version 2)
Quarter: 2021Q4

REPORT INFORMATION
  Report Type: Report from Study
  Country: US (occurrence: US)
  Receive Date: 20211124
  Receipt Date: 20211223
  Transmission Date: 20220303
  Serious: No
  Sender: FDA-Public Use
  Company Number: US-KYOWAKIRIN-2021BKK019471

PATIENT

DRUGS (1)
  1. CRYSVITA [Suspect]
     Active Substance: BUROSUMAB-TWZA
     Indication: Hereditary hypophosphataemic rickets
     Dosage: 70 MG, EVERY 4 WEEKS
     Route: 065

REACTIONS (5)
  - Vitamin B12 decreased [Unknown]
  - Blood iron decreased [Unknown]
  - Fatigue [Unknown]
  - Pain in extremity [Unknown]
  - Arthralgia [Unknown]
